FAERS Safety Report 19099415 (Version 2)
Quarter: 2021Q2

REPORT INFORMATION
  Report Type: Spontaneous
  Country: US (occurrence: US)
  Receive Date: 20210407
  Receipt Date: 20210414
  Transmission Date: 20210717
  Serious: Yes (Life-Threatening, Other)
  Sender: FDA-Public Use
  Company Number: US-ABBVIE-21K-163-3847422-00

PATIENT
  Age: 82 Year
  Sex: Male

DRUGS (2)
  1. LUPRON DEPOT [Suspect]
     Active Substance: LEUPROLIDE ACETATE
     Indication: PROSTATE CANCER METASTATIC
     Route: 065
  2. ELIGARD [Suspect]
     Active Substance: LEUPROLIDE ACETATE
     Indication: PROSTATE CANCER METASTATIC
     Route: 065

REACTIONS (11)
  - Skin burning sensation [Unknown]
  - Chronic kidney disease [Unknown]
  - Prostatic specific antigen increased [Unknown]
  - Glomerular filtration rate increased [Unknown]
  - Seizure [Unknown]
  - Rash [Unknown]
  - Hypotension [Unknown]
  - Fear [Not Recovered/Not Resolved]
  - Fall [Unknown]
  - Adverse drug reaction [Unknown]
  - General physical health deterioration [Not Recovered/Not Resolved]
